FAERS Safety Report 8019496-1 (Version None)
Quarter: 2012Q1

REPORT INFORMATION
  Report Type: 
  Country: None (occurrence: None)
  Receive Date: 20120103
  Receipt Date: 20111230
  Transmission Date: 20120608
  Serious: Yes (Hospitalization, Other)
  Sender: FDA-Public Use
  Company Number: PHFR2011GB006406

PATIENT
  Sex: Female

DRUGS (5)
  1. VALPROATE SODIUM [Concomitant]
     Dosage: 800 MG, QD
     Route: 048
  2. CLOZARIL [Suspect]
     Dosage: 175 MG, QD
     Dates: end: 20111103
  3. CLOZARIL [Suspect]
     Dosage: 100 MG, QD
     Route: 048
  4. CLOZARIL [Suspect]
     Dosage: 25 MG, QD
     Route: 048
  5. CLOZARIL [Suspect]
     Indication: SCHIZOPHRENIA
     Dosage: 150 MG, QD
     Route: 048
     Dates: start: 20111018

REACTIONS (12)
  - FALL [None]
  - DIZZINESS [None]
  - BODY TEMPERATURE INCREASED [None]
  - TREMOR [None]
  - NAUSEA [None]
  - VIRAL INFECTION [None]
  - DIARRHOEA [None]
  - MUSCLE RIGIDITY [None]
  - MALAISE [None]
  - PAIN [None]
  - TACHYCARDIA [None]
  - HEART RATE INCREASED [None]
